FAERS Safety Report 25868423 (Version 1)
Quarter: 2025Q4

REPORT INFORMATION
  Report Type: Spontaneous
  Country: US (occurrence: US)
  Receive Date: 20251001
  Receipt Date: 20251001
  Transmission Date: 20260117
  Serious: Yes (Death, Life-Threatening, Hospitalization)
  Sender: TEVA
  Company Number: US-TEVA-VS-3375362

PATIENT
  Age: 64 Year
  Sex: Male

DRUGS (3)
  1. VORICONAZOLE [Suspect]
     Active Substance: VORICONAZOLE
     Indication: Cerebral aspergillosis
     Route: 065
  2. IBRUTINIB [Suspect]
     Active Substance: IBRUTINIB
     Indication: Chronic lymphocytic leukaemia
     Route: 065
  3. OBINUTUZUMAB [Suspect]
     Active Substance: OBINUTUZUMAB
     Indication: Chronic lymphocytic leukaemia
     Route: 065

REACTIONS (6)
  - Cerebral aspergillosis [Fatal]
  - Cerebellar stroke [Fatal]
  - Drug ineffective [Fatal]
  - Transverse sinus thrombosis [Fatal]
  - Sigmoid sinus thrombosis [Fatal]
  - Carotid artery stenosis [Fatal]
